FAERS Safety Report 16900060 (Version 1)
Quarter: 2019Q4

REPORT INFORMATION
  Report Type: Spontaneous
  Country: US (occurrence: US)
  Receive Date: 20190816
  Receipt Date: 20190816
  Transmission Date: 20200122
  Serious: Yes (Hospitalization)
  Sender: FDA-Public Use
  Company Number: None

PATIENT
  Sex: Male

DRUGS (11)
  1. KETOCONAZOLE. [Concomitant]
     Active Substance: KETOCONAZOLE
  2. TRIAMCINOLON [Concomitant]
  3. CICLOPIROX. [Concomitant]
     Active Substance: CICLOPIROX
  4. TACLONEX [Concomitant]
     Active Substance: BETAMETHASONE DIPROPIONATE\CALCIPOTRIENE\CALCIPOTRIENE HYDRATE
  5. CLOBETASOL [Concomitant]
     Active Substance: CLOBETASOL
  6. HYDROXYZ HCL [Concomitant]
     Active Substance: HYDROXYZINE HYDROCHLORIDE
  7. PENICILLIN [Concomitant]
     Active Substance: PENICILLIN
  8. XARELTO [Concomitant]
     Active Substance: RIVAROXABAN
  9. XELJANZ [Suspect]
     Active Substance: TOFACITINIB CITRATE
     Indication: PSORIATIC ARTHROPATHY
     Route: 048
     Dates: start: 20181020
  10. FUROSEMIDE. [Concomitant]
     Active Substance: FUROSEMIDE
  11. LOSARTAN. [Concomitant]
     Active Substance: LOSARTAN

REACTIONS (1)
  - Gastrointestinal surgery [None]
